FAERS Safety Report 17071232 (Version 1)
Quarter: 2019Q4

REPORT INFORMATION
  Report Type: Spontaneous
  Country: US (occurrence: US)
  Receive Date: 20191025
  Receipt Date: 20191025
  Transmission Date: 20200122
  Serious: Yes (Other)
  Sender: FDA-Public Use
  Company Number: None

PATIENT
  Age: 68 Year
  Sex: Male
  Weight: 72.03 kg

DRUGS (1)
  1. OXALIPLATIN 50MG/10ML [Suspect]
     Active Substance: OXALIPLATIN
     Indication: PANCREATIC CARCINOMA
     Dosage: ?          OTHER FREQUENCY:EVERY 2 WEEKS;?
     Route: 042
     Dates: start: 20191001

REACTIONS (3)
  - Nausea [None]
  - Hyperhidrosis [None]
  - Blood pressure increased [None]

NARRATIVE: CASE EVENT DATE: 20191015
